FAERS Safety Report 15598366 (Version 1)
Quarter: 2018Q4

REPORT INFORMATION
  Report Type: Spontaneous
  Country: US (occurrence: US)
  Receive Date: 20181108
  Receipt Date: 20181108
  Transmission Date: 20190205
  Serious: Yes (Other)
  Sender: FDA-Public Use
  Company Number: US-MYLANLABS-2018M1082093

PATIENT
  Age: 59 Year
  Sex: Male

DRUGS (2)
  1. PREDNISONE. [Suspect]
     Active Substance: PREDNISONE
     Indication: IMMUNOSUPPRESSANT DRUG THERAPY
     Route: 065
  2. TACROLIMUS. [Suspect]
     Active Substance: TACROLIMUS
     Indication: IMMUNOSUPPRESSANT DRUG THERAPY
     Route: 065

REACTIONS (8)
  - Mitral valve incompetence [Recovered/Resolved]
  - Complications of transplanted heart [Recovered/Resolved]
  - Unmasking of previously unidentified disease [Recovered/Resolved]
  - Endocarditis Q fever [Recovered/Resolved]
  - Disease progression [Recovered/Resolved]
  - Glomerulonephritis [Recovered/Resolved]
  - Aortic valve incompetence [Recovered/Resolved]
  - Complications of transplanted kidney [Recovered/Resolved]
